FAERS Safety Report 8452654-0 (Version None)
Quarter: 2012Q2

REPORT INFORMATION
  Report Type: 
  Country: None (occurrence: None)
  Receive Date: 20120620
  Receipt Date: 20120422
  Transmission Date: 20120825
  Serious: No
  Sender: FDA-Public Use
  Company Number: US-VERTEX PHARMACEUTICALS INC.-AE-2012-005777

PATIENT
  Sex: Female
  Weight: 63.106 kg

DRUGS (5)
  1. INCIVEK [Suspect]
     Indication: HEPATITIS C
     Route: 048
     Dates: start: 20120411
  2. THYROID MED [Concomitant]
  3. BP MED [Concomitant]
     Indication: BLOOD PRESSURE
  4. RIBAVIRIN [Concomitant]
     Indication: HEPATITIS C
     Route: 048
     Dates: start: 20120411
  5. PEGASYS [Concomitant]
     Indication: HEPATITIS C
     Route: 058
     Dates: start: 20120411

REACTIONS (3)
  - EYE PAIN [None]
  - EYE IRRITATION [None]
  - RASH [None]
